FAERS Safety Report 6460893-3 (Version None)
Quarter: 2009Q4

REPORT INFORMATION
  Report Type: 
  Country: None (occurrence: None)
  Receive Date: 20091130
  Receipt Date: 20091116
  Transmission Date: 20100525
  Serious: Yes (Hospitalization)
  Sender: FDA-Public Use
  Company Number: JM-ASTRAZENECA-2009SE23495

PATIENT
  Age: 767 Day
  Sex: Female

DRUGS (9)
  1. MEROPEN [Suspect]
     Indication: GASTROENTERITIS SALMONELLA
     Route: 042
     Dates: start: 20091011, end: 20091019
  2. SULBACILLIN [Suspect]
     Indication: GASTROENTERITIS SALMONELLA
     Route: 042
     Dates: start: 20091002, end: 20091004
  3. CARBENIN [Suspect]
     Indication: GASTROENTERITIS SALMONELLA
     Route: 037
     Dates: start: 20091005, end: 20091010
  4. VANCOMYCIN HCL [Suspect]
     Indication: GASTROENTERITIS SALMONELLA
     Route: 037
     Dates: start: 20091008, end: 20091014
  5. WYSTAL [Suspect]
     Indication: GASTROENTERITIS SALMONELLA
     Route: 042
     Dates: start: 20091015, end: 20091019
  6. THYRADIN S [Concomitant]
     Indication: HYPOTHYROIDISM
     Route: 048
     Dates: start: 20091002
  7. CLARITH [Concomitant]
     Indication: BRONCHOPNEUMONIA
     Route: 048
     Dates: start: 20091002, end: 20091007
  8. MUCODYNE DS [Concomitant]
     Indication: BRONCHOPNEUMONIA
     Route: 048
     Dates: start: 20091002, end: 20091007
  9. NISSEKI POLYGLOBIN-N [Concomitant]
     Indication: GASTROENTERITIS SALMONELLA
     Route: 042
     Dates: start: 20091008, end: 20091012

REACTIONS (4)
  - C-REACTIVE PROTEIN INCREASED [None]
  - PYREXIA [None]
  - RASH [None]
  - WHITE BLOOD CELL COUNT INCREASED [None]
